FAERS Safety Report 9064228 (Version 2)
Quarter: 2013Q1

REPORT INFORMATION
  Report Type: Spontaneous
  Country: DK (occurrence: IT)
  Receive Date: 20130213
  Receipt Date: 20130215
  Transmission Date: 20140127
  Serious: Yes (Hospitalization)
  Sender: FDA-Public Use
  Company Number: IT-FRI-1000042492

PATIENT
  Age: 33 None
  Sex: Female

DRUGS (1)
  1. ESCITALOPRAM [Suspect]
     Indication: PRODUCT USED FOR UNKNOWN INDICATION
     Dosage: 40 MG
     Route: 048
     Dates: start: 20130120, end: 20130120

REACTIONS (2)
  - Sopor [Recovered/Resolved]
  - Overdose [Recovered/Resolved]
